FAERS Safety Report 24843144 (Version 1)
Quarter: 2025Q1

REPORT INFORMATION
  Report Type: Spontaneous
  Country: CN (occurrence: CN)
  Receive Date: 20250115
  Receipt Date: 20250115
  Transmission Date: 20250409
  Serious: Yes (Hospitalization, Other)
  Sender: TAKEDA
  Company Number: CN-JNJFOC-20241260510

PATIENT
  Age: 73 Year
  Sex: Female
  Weight: 53 kg

DRUGS (29)
  1. VELCADE [Suspect]
     Active Substance: BORTEZOMIB
     Indication: Plasma cell myeloma
  2. DEXAMETHASONE [Suspect]
     Active Substance: DEXAMETHASONE
     Indication: Plasma cell myeloma
  3. ACYCLOVIR [Concomitant]
     Active Substance: ACYCLOVIR
     Indication: Prophylaxis
  4. METHYLCOBALAMIN [Concomitant]
     Active Substance: METHYLCOBALAMIN
     Indication: Prophylaxis
     Dosage: 0.5 MILLIGRAM, QD
     Dates: start: 202012
  5. METOPROLOL SUCCINATE [Concomitant]
     Active Substance: METOPROLOL SUCCINATE
     Indication: Hypertension
     Dosage: 47.5 MILLIGRAM, QD
     Dates: start: 2019
  6. NIFEDIPINE [Concomitant]
     Active Substance: NIFEDIPINE
     Dosage: 30 MILLIGRAM, QD
     Dates: start: 2019
  7. VITAMIN B1 HACHI [Concomitant]
     Indication: Prophylaxis
     Dosage: 10 MILLIGRAM, QD
     Dates: start: 202012
  8. RIBOFLAVIN [Concomitant]
     Active Substance: RIBOFLAVIN
     Indication: Prophylaxis
     Dosage: 10 MILLIGRAM, QD
     Dates: start: 202012
  9. ASCORBIC ACID [Concomitant]
     Active Substance: ASCORBIC ACID
     Indication: Prophylaxis
     Dosage: 300 MILLIGRAM, QD
     Dates: start: 202012
  10. Wei d2 lin pu gai [Concomitant]
     Indication: Mineral supplementation
     Dosage: UNK UNK, QD
     Dates: start: 202012
  11. AVATROMBOPAG [Concomitant]
     Active Substance: AVATROMBOPAG
     Indication: Thrombocytopenia
     Dosage: 60 MILLIGRAM, QD
     Dates: start: 20241108
  12. CHLORPHENIRAMINE MALEATE [Concomitant]
     Active Substance: CHLORPHENIRAMINE MALEATE
     Indication: Prophylaxis
  13. CHLORPHENIRAMINE MALEATE [Concomitant]
     Active Substance: CHLORPHENIRAMINE MALEATE
  14. SODIUM CHLORIDE [Concomitant]
     Active Substance: SODIUM CHLORIDE
     Indication: Constipation
  15. MONTELUKAST [Concomitant]
     Active Substance: MONTELUKAST
     Indication: Prophylaxis
  16. PANTOPRAZOLE SODIUM [Concomitant]
     Active Substance: PANTOPRAZOLE SODIUM
     Indication: Prophylaxis
  17. PANTOPRAZOLE SODIUM [Concomitant]
     Active Substance: PANTOPRAZOLE SODIUM
  18. ACETAMINOPHEN [Concomitant]
     Active Substance: ACETAMINOPHEN
     Indication: Prophylaxis
  19. ACETAMINOPHEN [Concomitant]
     Active Substance: ACETAMINOPHEN
  20. PROMETHAZINE [Concomitant]
     Active Substance: PROMETHAZINE HYDROCHLORIDE
     Indication: Prophylaxis
  21. PROMETHAZINE [Concomitant]
     Active Substance: PROMETHAZINE HYDROCHLORIDE
  22. RECOMBINANT HUMAN THROMBOPOIETIN [Concomitant]
     Active Substance: RECOMBINANT HUMAN THROMBOPOIETIN
     Indication: Thrombocytopenia
  23. SODIUM BICARBONATE [Concomitant]
     Active Substance: SODIUM BICARBONATE
     Dosage: 1 GRAM, TID
     Dates: start: 20241101
  24. RABEPRAZOLE SODIUM [Concomitant]
     Active Substance: RABEPRAZOLE SODIUM
     Indication: Prophylaxis
  25. RABEPRAZOLE SODIUM [Concomitant]
     Active Substance: RABEPRAZOLE SODIUM
  26. RABEPRAZOLE SODIUM [Concomitant]
     Active Substance: RABEPRAZOLE SODIUM
  27. ZOLEDRONIC ACID [Concomitant]
     Active Substance: ZOLEDRONIC ACID
     Indication: Prophylaxis
  28. GLUTATHIONE [Concomitant]
     Active Substance: GLUTATHIONE
  29. MAGNESIUM ISOGLYCYRRHIZINATE [Concomitant]
     Active Substance: MAGNESIUM ISOGLYCYRRHIZINATE

REACTIONS (2)
  - Thrombocytopenia [Not Recovered/Not Resolved]
  - Hepatic function abnormal [Not Recovered/Not Resolved]

NARRATIVE: CASE EVENT DATE: 20241115
